FAERS Safety Report 24197618 (Version 1)
Quarter: 2024Q3

REPORT INFORMATION
  Report Type: Spontaneous
  Country: CN (occurrence: CN)
  Receive Date: 20240811
  Receipt Date: 20240811
  Transmission Date: 20241016
  Serious: Yes (Other)
  Sender: BAXTER
  Company Number: None

PATIENT
  Age: 3 Year
  Sex: Female
  Weight: 13.4 kg

DRUGS (5)
  1. CYCLOPHOSPHAMIDE [Suspect]
     Active Substance: CYCLOPHOSPHAMIDE
     Indication: Acute lymphocytic leukaemia
     Dosage: 0.567G, ONE TIME IN ONE DAY, DILUTED WITH 0.9% SODIUM CHLORIDE (NS) 250 ML
     Route: 041
     Dates: start: 20240320, end: 20240320
  2. SODIUM CHLORIDE [Suspect]
     Active Substance: SODIUM CHLORIDE
     Indication: Medication dilution
     Dosage: 0.9% 250 ML, ONE TIME IN ONE DAY, USED TO DILUTE CYCLOPHOSPHAMIDE 0.567 G
     Route: 041
     Dates: start: 20240320, end: 20240320
  3. SODIUM CHLORIDE [Suspect]
     Active Substance: SODIUM CHLORIDE
     Dosage: 0.9% 250 ML, Q12H, USED TO DILUTE CYTARABINE 0.567 G
     Route: 041
     Dates: start: 20240320, end: 20240323
  4. MERCAPTOPURINE [Suspect]
     Active Substance: MERCAPTOPURINE
     Indication: Acute lymphocytic leukaemia
     Dosage: 28 MG, QN, (D1-D4)
     Route: 048
     Dates: start: 20240320, end: 20240323
  5. CYTARABINE [Suspect]
     Active Substance: CYTARABINE
     Indication: Acute lymphocytic leukaemia
     Dosage: 0.567G, Q12H, DILUTED WITH 0.9% SODIUM CHLORIDE (NS) 250 ML, (D1-4)
     Route: 041
     Dates: start: 20240320, end: 20240323

REACTIONS (1)
  - Myelosuppression [Recovering/Resolving]

NARRATIVE: CASE EVENT DATE: 20240326
